FAERS Safety Report 7978240-4 (Version None)
Quarter: 2011Q4

REPORT INFORMATION
  Report Type: 
  Country: None (occurrence: None)
  Receive Date: 20111214
  Receipt Date: 20111207
  Transmission Date: 20120403
  Serious: Yes (Other)
  Sender: FDA-Public Use
  Company Number: NZ-PFIZER INC-2011297852

PATIENT
  Sex: Male

DRUGS (1)
  1. LIPITOR [Suspect]
     Dosage: UNK

REACTIONS (9)
  - WEIGHT DECREASED [None]
  - HYPOAESTHESIA [None]
  - DECREASED APPETITE [None]
  - PAIN IN EXTREMITY [None]
  - PARAESTHESIA [None]
  - VASCULAR GRAFT [None]
  - MYALGIA [None]
  - ASTHENIA [None]
  - FATIGUE [None]
